FAERS Safety Report 6212126-0 (Version None)
Quarter: 2009Q2

REPORT INFORMATION
  Report Type: 
  Country: None (occurrence: None)
  Receive Date: 20090602
  Receipt Date: 20090525
  Transmission Date: 20091009
  Serious: Yes (Hospitalization, Other)
  Sender: FDA-Public Use
  Company Number: PHHY2009JP14231

PATIENT
  Age: 72 Year
  Sex: Female

DRUGS (5)
  1. NEORAL [Suspect]
     Indication: PEMPHIGUS
     Dosage: 200 MG DAILY
     Route: 048
     Dates: start: 20081120, end: 20081225
  2. PREDONINE [Suspect]
     Dosage: UNK
     Route: 048
     Dates: start: 20080327
  3. BAKTAR [Concomitant]
     Dosage: 4 DF, UNK
     Route: 048
     Dates: start: 20080626, end: 20081225
  4. ITRACONAZOLE [Concomitant]
     Dosage: 100 MG
     Route: 048
     Dates: start: 20080626, end: 20081225
  5. ACTONEL [Concomitant]
     Dosage: 17.5 MG
     Route: 048

REACTIONS (6)
  - CYTOMEGALOVIRUS GASTRITIS [None]
  - GASTRITIS EROSIVE [None]
  - LIVER DISORDER [None]
  - PEMPHIGUS [None]
  - PLATELET COUNT DECREASED [None]
  - RENAL DISORDER [None]
